FAERS Safety Report 5356994-3 (Version None)
Quarter: 2007Q2

REPORT INFORMATION
  Report Type: 
  Country: None (occurrence: None)
  Receive Date: 20070612
  Receipt Date: 20070612
  Transmission Date: 20071010
  Serious: No
  Sender: FDA-Public Use
  Company Number: None

PATIENT
  Age: 29 Year
  Sex: Female
  Weight: 49.8957 kg

DRUGS (4)
  1. ZELNORM [Suspect]
     Indication: GASTROOESOPHAGEAL REFLUX DISEASE
     Dosage: 6MG 2 TIMES DAILY
     Dates: start: 20060404
  2. ZELNORM [Suspect]
     Indication: IRRITABLE BOWEL SYNDROME
     Dosage: 6MG 2 TIMES DAILY
     Dates: start: 20060404
  3. ZELNORM [Suspect]
     Indication: GASTROOESOPHAGEAL REFLUX DISEASE
     Dosage: 6MG 2 TIMES DAILY
     Dates: start: 20070301
  4. ZELNORM [Suspect]
     Indication: IRRITABLE BOWEL SYNDROME
     Dosage: 6MG 2 TIMES DAILY
     Dates: start: 20070301

REACTIONS (2)
  - CARDIAC DISORDER [None]
  - HEART RATE INCREASED [None]
